FAERS Safety Report 15832763 (Version 1)
Quarter: 2019Q1

REPORT INFORMATION
  Report Type: Spontaneous
  Country: GR (occurrence: GR)
  Receive Date: 20190116
  Receipt Date: 20190116
  Transmission Date: 20190417
  Serious: Yes (Other)
  Sender: FDA-Public Use
  Company Number: GR-ASTRAZENECA-2019SE06981

PATIENT
  Age: 82 Year
  Sex: Female

DRUGS (4)
  1. QUETIAPINE FUMARATE. [Suspect]
     Active Substance: QUETIAPINE FUMARATE
     Indication: DEMENTIA
     Dosage: PATIENT EXPERIENCED LACK OF EFFICACY AND PATIENT^S SON DOUBLED THE DOSE FOR ONE NIGHT IN ACCORDAN...
     Route: 048
  2. MEMANTINE. [Concomitant]
     Active Substance: MEMANTINE
  3. COAPROVEL [Concomitant]
     Active Substance: HYDROCHLOROTHIAZIDE\IRBESARTAN
  4. CLOPIDOGREL [Concomitant]
     Active Substance: CLOPIDOGREL BISULFATE

REACTIONS (3)
  - Insomnia [Unknown]
  - Off label use [Unknown]
  - Screaming [Unknown]
